FAERS Safety Report 8924928 (Version 1)
Quarter: 2012Q4

REPORT INFORMATION
  Report Type: 
  Country: US (occurrence: US)
  Receive Date: 20121126
  Receipt Date: 20121126
  Transmission Date: 20130627
  Serious: Yes (Hospitalization)
  Sender: FDA-Public Use
  Company Number: US-ELI_LILLY_AND_COMPANY-US201211004786

PATIENT
  Sex: Female
  Weight: 62.13 kg

DRUGS (2)
  1. ADCIRCA [Suspect]
  2. TYVASO [Concomitant]
     Indication: PULMONARY ARTERIAL HYPERTENSION
     Dosage: 3-9 breaths, qid
     Route: 055
     Dates: start: 20120926

REACTIONS (1)
  - Platelet count decreased [Unknown]
